FAERS Safety Report 15488240 (Version 1)
Quarter: 2018Q4

REPORT INFORMATION
  Report Type: Report from Study
  Country: GB (occurrence: GB)
  Receive Date: 20181011
  Receipt Date: 20181011
  Transmission Date: 20190205
  Serious: Yes (Other)
  Sender: FDA-Public Use
  Company Number: GB-JNJFOC-20181005694

PATIENT
  Age: 59 Year
  Sex: Female

DRUGS (16)
  1. NEPRAMEL [Concomitant]
     Route: 050
  2. ESOMEPRAZOLE. [Concomitant]
     Active Substance: ESOMEPRAZOLE MAGNESIUM
     Route: 050
  3. BY-VERTIN [Concomitant]
     Route: 050
  4. PREDNISOLONE. [Concomitant]
     Active Substance: PREDNISOLONE
     Route: 050
  5. PARACETAMOL [Concomitant]
     Active Substance: ACETAMINOPHEN
     Route: 050
  6. LYRICA [Concomitant]
     Active Substance: PREGABALIN
     Route: 050
  7. SEPTRIN [Concomitant]
     Active Substance: SULFAMETHOXAZOLE\TRIMETHOPRIM
     Dosage: FREQUENCY ON ON ALTERNATE DAYS
     Route: 050
  8. CITALOPRAM [Concomitant]
     Active Substance: CITALOPRAM HYDROBROMIDE
     Route: 050
  9. STELARA [Suspect]
     Active Substance: USTEKINUMAB
     Indication: TEMPORAL ARTERITIS
     Route: 058
     Dates: start: 20150213
  10. ZOPITAN [Concomitant]
     Active Substance: ZOPICLONE
     Route: 050
  11. CALCICHEW [Concomitant]
     Active Substance: CALCIUM CARBONATE
     Route: 050
  12. DELTACORTRIL [Concomitant]
     Active Substance: PREDNISOLONE
     Route: 050
  13. SIMVASTATIN. [Concomitant]
     Active Substance: SIMVASTATIN
     Route: 050
  14. ARIPIPRAZOLE. [Concomitant]
     Active Substance: ARIPIPRAZOLE
     Route: 050
  15. LYRICA [Concomitant]
     Active Substance: PREGABALIN
     Dosage: MORNING
     Route: 050
  16. NUPRIN [Concomitant]
     Active Substance: IBUPROFEN
     Route: 050

REACTIONS (3)
  - Off label use [Unknown]
  - Lower respiratory tract infection [Not Recovered/Not Resolved]
  - Product use in unapproved indication [Unknown]

NARRATIVE: CASE EVENT DATE: 20150213
